FAERS Safety Report 24582199 (Version 2)
Quarter: 2025Q3

REPORT INFORMATION
  Report Type: Report from Study
  Country: US (occurrence: US)
  Receive Date: 20241105
  Receipt Date: 20250810
  Transmission Date: 20251021
  Serious: Yes (Hospitalization, Other)
  Sender: ALEXION PHARMACEUTICALS
  Company Number: US-AstraZeneca-CH-00726726A

PATIENT
  Age: 85 Year
  Sex: Female

DRUGS (9)
  1. CAPIVASERTIB [Suspect]
     Active Substance: CAPIVASERTIB
     Indication: Breast cancer female
     Dosage: 320 MILLIGRAM, Q12H
     Dates: start: 20240805
  2. DOXYCYCLINE [Concomitant]
     Active Substance: DOXYCYCLINE
     Indication: Rosacea
     Route: 065
  3. ONDANSETRON [Concomitant]
     Active Substance: ONDANSETRON
     Indication: Nausea
     Route: 065
  4. ONDANSETRON [Concomitant]
     Active Substance: ONDANSETRON
     Indication: Vomiting
  5. PANTOPRAZOLE [Concomitant]
     Active Substance: PANTOPRAZOLE
     Indication: Dyspepsia
     Route: 065
  6. POTASSIUM CHLORIDE [Concomitant]
     Active Substance: POTASSIUM CHLORIDE
     Route: 065
  7. PROCHLORPERAZINE [Concomitant]
     Active Substance: PROCHLORPERAZINE
     Route: 065
  8. TRAMADOL [Concomitant]
     Active Substance: TRAMADOL
     Indication: Pain
     Dosage: 50 MILLIGRAM, Q8H
     Route: 065
  9. TYLENOL [Concomitant]
     Active Substance: ACETAMINOPHEN
     Route: 065

REACTIONS (10)
  - Cardiac failure congestive [Unknown]
  - Pain [Unknown]
  - Asthenia [Unknown]
  - Blood potassium decreased [Unknown]
  - Abdominal discomfort [Unknown]
  - Vomiting [Unknown]
  - Aortic valve sclerosis [Unknown]
  - Peripheral swelling [Unknown]
  - Nausea [Unknown]
  - Dyspepsia [Unknown]

NARRATIVE: CASE EVENT DATE: 20241004
